FAERS Safety Report 16915229 (Version 1)
Quarter: 2019Q4

REPORT INFORMATION
  Report Type: Spontaneous
  Country: FR (occurrence: FR)
  Receive Date: 20191014
  Receipt Date: 20191014
  Transmission Date: 20200122
  Serious: Yes (Hospitalization)
  Sender: FDA-Public Use
  Company Number: FR-EMD SERONO-E2B_90071353

PATIENT
  Age: 29 Year
  Sex: Female

DRUGS (4)
  1. CETROTIDE [Suspect]
     Active Substance: CETRORELIX ACETATE
     Indication: CONTROLLED OVARIAN STIMULATION
     Route: 058
     Dates: start: 20190126, end: 20190128
  2. OVITRELLE [Suspect]
     Active Substance: CHORIOGONADOTROPIN ALFA
     Indication: CONTROLLED OVARIAN STIMULATION
     Route: 058
     Dates: start: 20190128, end: 20190128
  3. PERGOVERIS 150+75 IU POWDER AND SOLVENT FOR SOLUTION FOR INJECTION [Suspect]
     Active Substance: FOLLITROPIN\LUTROPIN ALFA
     Indication: CONTROLLED OVARIAN STIMULATION
     Dosage: FORM STRENGTH: 150 UI/ 75UI
     Route: 058
     Dates: start: 20190119, end: 20190127
  4. DECAPEPTYL (ACETATE) [Suspect]
     Active Substance: TRIPTORELIN ACETATE
     Indication: CONTROLLED OVARIAN STIMULATION
     Route: 058
     Dates: start: 20190128, end: 20190128

REACTIONS (4)
  - Abdominal pain [Recovered/Resolved]
  - Ovarian hyperstimulation syndrome [Recovered/Resolved]
  - Chest pain [Recovered/Resolved]
  - Effusion [Recovered/Resolved]

NARRATIVE: CASE EVENT DATE: 20190131
